FAERS Safety Report 25755830 (Version 4)
Quarter: 2025Q4

REPORT INFORMATION
  Report Type: Spontaneous
  Country: EU (occurrence: EU)
  Receive Date: 20250903
  Receipt Date: 20251125
  Transmission Date: 20260118
  Serious: Yes (Death, Hospitalization, Other)
  Sender: NOVARTIS
  Company Number: EU-002147023-NVSC2025IT134136

PATIENT
  Age: 58 Year
  Sex: Male

DRUGS (5)
  1. PLUVICTO [Suspect]
     Active Substance: LUTETIUM LU-177 VIPIVOTIDE TETRAXETAN
     Indication: Hormone-refractory prostate cancer
     Dosage: 7400 MBQ (1 CYCLE)
     Route: 065
     Dates: start: 20250506
  2. PLUVICTO [Suspect]
     Active Substance: LUTETIUM LU-177 VIPIVOTIDE TETRAXETAN
     Dosage: 7400 MBQ (2 CYCLE)
     Route: 065
     Dates: start: 20250630
  3. DENOSUMAB [Concomitant]
     Active Substance: DENOSUMAB
     Indication: Product used for unknown indication
     Dosage: UNK
     Route: 065
  4. Decapeptyl [Concomitant]
     Indication: Product used for unknown indication
     Dosage: UNK
     Route: 065
  5. ERYTHROPOIETIN [Concomitant]
     Active Substance: ERYTHROPOIETIN
     Indication: Product used for unknown indication
     Dosage: UNK
     Route: 065

REACTIONS (10)
  - Death [Fatal]
  - Skin lesion [Recovering/Resolving]
  - Haemorrhage [Unknown]
  - Sepsis [Unknown]
  - Skin infection [Unknown]
  - Skin ulcer [Unknown]
  - Deep vein thrombosis [Unknown]
  - Myelosuppression [Unknown]
  - General physical condition abnormal [Unknown]
  - Dry mouth [Unknown]
